FAERS Safety Report 7237378-X (Version None)
Quarter: 2011Q1

REPORT INFORMATION
  Report Type: 
  Country: None (occurrence: None)
  Receive Date: 20110121
  Receipt Date: 20110114
  Transmission Date: 20110831
  Serious: No
  Sender: FDA-Public Use
  Company Number: US-PFIZER INC-US-WYE-H16776710

PATIENT
  Sex: Female
  Weight: 50 kg

DRUGS (4)
  1. ESTROPIPATE [Suspect]
     Dosage: UNKNOWN
     Route: 065
     Dates: start: 19950101
  2. OGEN [Suspect]
     Dosage: UNKNOWN
     Route: 065
     Dates: end: 20100701
  3. PREMARIN [Suspect]
     Indication: PRODUCT USED FOR UNKNOWN INDICATION
     Dosage: LOW DOSE
     Route: 065
     Dates: start: 19950101
  4. CARDIZEM [Concomitant]

REACTIONS (6)
  - HEADACHE [None]
  - BREAST TENDERNESS [None]
  - ACTIVITIES OF DAILY LIVING IMPAIRED [None]
  - HYPOTHYROIDISM [None]
  - BLOOD CHOLESTEROL INCREASED [None]
  - HYPERTENSION [None]
